FAERS Safety Report 9845950 (Version 1)
Quarter: 2013Q4

REPORT INFORMATION
  Report Type: Spontaneous
  Country: US (occurrence: None)
  Receive Date: 20131219
  Receipt Date: 20131219
  Transmission Date: 20140711
  Serious: Yes (Disabling)
  Sender: FDA-Public Use
  Company Number: 163-20785-13042369

PATIENT
  Age: 24 Year
  Sex: Male

DRUGS (2)
  1. THALOMID (THALIDOMIDE) (200 MILLIGRAM, CAPSULES) [Suspect]
     Indication: PRODUCT USED FOR UNKNOWN INDICATION
     Dosage: ON DAYS O CHEMO,
     Route: 048
     Dates: start: 20120909, end: 20130317
  2. DECADRON(DEXAMETHASONE)(UNKNOWN) [Concomitant]

REACTIONS (1)
  - Neuropathy peripheral [None]
